FAERS Safety Report 4296299-5 (Version None)
Quarter: 2004Q1

REPORT INFORMATION
  Report Type: 
  Country: None (occurrence: None)
  Receive Date: 20040217
  Receipt Date: 20031008
  Transmission Date: 20041129
  Serious: No
  Sender: FDA-Public Use
  Company Number: US-GLAXOSMITHKLINE-A0429831A

PATIENT
  Age: 19 Year
  Sex: Female

DRUGS (4)
  1. LAMICTAL [Suspect]
     Route: 048
     Dates: start: 20030926, end: 20031002
  2. KLONOPIN [Concomitant]
     Indication: ANXIETY
     Dosage: .5MG TWICE PER DAY
     Route: 048
  3. LEXAPRO [Concomitant]
     Indication: DEPRESSION
     Dosage: 10MG PER DAY
     Route: 048
  4. ESKALITH [Concomitant]
     Dosage: 450MG TWICE PER DAY
     Route: 048

REACTIONS (6)
  - ABDOMINAL PAIN [None]
  - ABDOMINAL PAIN UPPER [None]
  - HEPATIC FUNCTION ABNORMAL [None]
  - PANCREATIC ENZYMES INCREASED [None]
  - PRURITUS GENERALISED [None]
  - RASH [None]
